FAERS Safety Report 23689714 (Version 1)
Quarter: 2024Q1

REPORT INFORMATION
  Report Type: Spontaneous
  Country: IT (occurrence: IT)
  Receive Date: 20240331
  Receipt Date: 20240331
  Transmission Date: 20240410
  Serious: Yes (Death)
  Sender: FDA-Public Use
  Company Number: IT-GERMAN-LIT/ITA/24/0004815

PATIENT
  Age: 56 Year
  Sex: Male

DRUGS (3)
  1. BENDAMUSTINE [Suspect]
     Active Substance: BENDAMUSTINE
     Indication: Hodgkin^s disease
  2. RITUXIMAB [Suspect]
     Active Substance: RITUXIMAB
     Indication: Hodgkin^s disease
     Dosage: MAINTENANCE THERAPY WITH RITUXIMAB EVERY 45?DAYS.
  3. RITUXIMAB [Suspect]
     Active Substance: RITUXIMAB

REACTIONS (4)
  - COVID-19 [Fatal]
  - Chronic obstructive pulmonary disease [Fatal]
  - Interstitial lung disease [Fatal]
  - Myocardial ischaemia [Fatal]

NARRATIVE: CASE EVENT DATE: 20220125
